FAERS Safety Report 25818321 (Version 2)
Quarter: 2025Q4

REPORT INFORMATION
  Report Type: Spontaneous
  Country: CH (occurrence: CH)
  Receive Date: 20250918
  Receipt Date: 20251006
  Transmission Date: 20260118
  Serious: Yes (Death, Other)
  Sender: ROCHE
  Company Number: CH-ROCHE-10000387504

PATIENT
  Age: 39 Year

DRUGS (6)
  1. RITUXIMAB [Suspect]
     Active Substance: RITUXIMAB
     Indication: Haemophagocytic lymphohistiocytosis
     Route: 065
  2. ACTEMRA [Suspect]
     Active Substance: TOCILIZUMAB
     Indication: Haemophagocytic lymphohistiocytosis
     Route: 065
     Dates: start: 20240710
  3. ACTEMRA [Suspect]
     Active Substance: TOCILIZUMAB
     Route: 065
     Dates: start: 20240711
  4. PRIVIGEN [Concomitant]
     Active Substance: HUMAN IMMUNOGLOBULIN G
  5. ETOPOSIDE [Concomitant]
     Active Substance: ETOPOSIDE
  6. ANAKINRA [Concomitant]
     Active Substance: ANAKINRA

REACTIONS (5)
  - Off label use [Unknown]
  - HIV infection CDC category C [Unknown]
  - Human herpesvirus 8 infection [Unknown]
  - Histoplasmosis [Unknown]
  - Death [Fatal]

NARRATIVE: CASE EVENT DATE: 20240907
